FAERS Safety Report 7597581-6 (Version None)
Quarter: 2011Q3

REPORT INFORMATION
  Report Type: 
  Country: None (occurrence: None)
  Receive Date: 20110708
  Receipt Date: 20110701
  Transmission Date: 20111222
  Serious: Yes (Life-Threatening, Hospitalization)
  Sender: FDA-Public Use
  Company Number: JP-ROCHE-779389

PATIENT
  Sex: Female
  Weight: 50 kg

DRUGS (6)
  1. SIMVASTATIN [Concomitant]
     Route: 048
     Dates: start: 19981029
  2. ARAVA [Suspect]
     Indication: RHEUMATOID ARTHRITIS
     Route: 048
     Dates: start: 20031208, end: 20110223
  3. MUCOSTA [Concomitant]
     Dosage: DOSE FROM: PERORAL AGENT.
     Route: 048
     Dates: start: 19981029
  4. ACTEMRA [Suspect]
     Indication: RHEUMATOID ARTHRITIS
     Route: 041
     Dates: start: 20091027, end: 20110209
  5. PREDNISOLONE [Concomitant]
     Route: 048
     Dates: start: 19981029
  6. CLINORIL [Concomitant]
     Route: 048
     Dates: start: 19981029

REACTIONS (1)
  - EPIGLOTTITIS [None]
